FAERS Safety Report 7654245-8 (Version None)
Quarter: 2011Q3

REPORT INFORMATION
  Report Type: 
  Country: None (occurrence: None)
  Receive Date: 20110803
  Receipt Date: 20110719
  Transmission Date: 20111222
  Serious: No
  Sender: FDA-Public Use
  Company Number: US-BAYER-2011-063882

PATIENT
  Sex: Male
  Weight: 80 kg

DRUGS (5)
  1. ASPIRIN [Concomitant]
  2. ALEVE (CAPLET) [Suspect]
     Indication: ARTHRITIS
     Dosage: BOTTLE COUNT 50S
     Route: 048
     Dates: start: 20110519, end: 20110719
  3. LORAZEPAM [Concomitant]
  4. TERAZOSIN HCL [Concomitant]
  5. HYDROCHLOROTHIAZIDE [Concomitant]

REACTIONS (1)
  - CONSTIPATION [None]
